FAERS Safety Report 16998995 (Version 2)
Quarter: 2019Q4

REPORT INFORMATION
  Report Type: Spontaneous
  Country: CN (occurrence: CN)
  Receive Date: 20191106
  Receipt Date: 20191114
  Transmission Date: 20200122
  Serious: Yes (Hospitalization)
  Sender: FDA-Public Use
  Company Number: CN-ELI_LILLY_AND_COMPANY-CN201910015908

PATIENT
  Age: 56 Year
  Sex: Male
  Weight: 73 kg

DRUGS (5)
  1. HUMULIN 70/30 [Suspect]
     Active Substance: INSULIN HUMAN
     Dosage: 11 DOSAGE FORM, EACH MORNING
     Route: 058
     Dates: start: 2017
  2. HUMULIN 70/30 [Suspect]
     Active Substance: INSULIN HUMAN
     Dosage: UNK UNK, UNKNOWN
     Route: 058
  3. HUMULIN 70/30 [Suspect]
     Active Substance: INSULIN HUMAN
     Dosage: 12 DOSAGE FORM, EACH EVENING
     Route: 058
     Dates: start: 2017
  4. HUMULIN 70/30 [Suspect]
     Active Substance: INSULIN HUMAN
     Indication: DIABETES MELLITUS
     Dosage: 13 DOSAGE FORM, EACH MORNING
     Route: 058
     Dates: start: 2017
  5. HUMULIN 70/30 [Suspect]
     Active Substance: INSULIN HUMAN
     Dosage: 10 DOSAGE FORM, EACH EVENING
     Route: 058
     Dates: start: 2017

REACTIONS (6)
  - Dizziness [Unknown]
  - Blood glucose increased [Unknown]
  - Visual impairment [Unknown]
  - Dyspnoea [Unknown]
  - Intercepted product selection error [Unknown]
  - Asthenia [Unknown]

NARRATIVE: CASE EVENT DATE: 20191012
